FAERS Safety Report 10266182 (Version 2)
Quarter: 2014Q3

REPORT INFORMATION
  Report Type: Spontaneous
  Country: TR (occurrence: TR)
  Receive Date: 20140627
  Receipt Date: 20140707
  Transmission Date: 20150326
  Serious: Yes (Hospitalization)
  Sender: FDA-Public Use
  Company Number: TR-ABBVIE-14P-161-1253390-00

PATIENT
  Age: 23 Year
  Sex: Male

DRUGS (2)
  1. VALPROATE SODIUM. [Suspect]
     Active Substance: VALPROATE SODIUM
     Indication: CONVULSION
  2. LEVETIRACETAM. [Suspect]
     Active Substance: LEVETIRACETAM
     Indication: EPILEPSY

REACTIONS (6)
  - Urine potassium increased [Unknown]
  - Hypokalaemia [Recovered/Resolved]
  - Alopecia [Unknown]
  - Fatigue [Unknown]
  - Palpitations [Unknown]
  - Hypomagnesaemia [Recovered/Resolved]
